FAERS Safety Report 7466478-4 (Version None)
Quarter: 2011Q2

REPORT INFORMATION
  Report Type: 
  Country: None (occurrence: None)
  Receive Date: 20110509
  Receipt Date: 20100816
  Transmission Date: 20111010
  Serious: Yes (Other)
  Sender: FDA-Public Use
  Company Number: US-ALEXION-A201000955

PATIENT
  Sex: Male

DRUGS (5)
  1. DECADRON [Concomitant]
     Indication: PREMEDICATION
     Dosage: 8 MG, UNK
  2. XANAX [Concomitant]
  3. FOLIC ACID [Concomitant]
  4. SOLIRIS [Suspect]
     Indication: PAROXYSMAL NOCTURNAL HAEMOGLOBINURIA
     Dosage: UNK
     Route: 042
  5. SOLIRIS [Suspect]
     Dosage: 900 MG, Q2W
     Route: 042

REACTIONS (7)
  - HEADACHE [None]
  - ABDOMINAL PAIN [None]
  - CHEST PAIN [None]
  - SPINAL COLUMN INJURY [None]
  - BACK PAIN [None]
  - URINE COLOUR ABNORMAL [None]
  - CHOLECYSTECTOMY [None]
